FAERS Safety Report 7916873-1 (Version None)
Quarter: 2011Q4

REPORT INFORMATION
  Report Type: 
  Country: None (occurrence: None)
  Receive Date: 20111116
  Receipt Date: 20111108
  Transmission Date: 20120403
  Serious: Yes (Hospitalization)
  Sender: FDA-Public Use
  Company Number: US-ASTELLAS-2011US003223

PATIENT
  Sex: Male
  Weight: 108 kg

DRUGS (12)
  1. TACROLIMUS [Suspect]
     Indication: RENAL TRANSPLANT
     Dosage: 3 MG, BID
     Route: 065
     Dates: start: 20100120
  2. PREDNISONE TAB [Concomitant]
     Indication: PRODUCT USED FOR UNKNOWN INDICATION
     Dosage: 5 MG, UID/QD
     Route: 048
  3. PROGRAF [Suspect]
     Indication: RENAL TRANSPLANT
  4. CARDURA [Concomitant]
     Indication: HYPERTENSION
     Dosage: 4 MG, QHS
     Route: 048
  5. MYCOPHENOLATE MOFETIL [Concomitant]
     Indication: PANCREAS TRANSPLANT
  6. LOPRESSOR [Concomitant]
     Indication: HYPERTENSION
     Dosage: 100 MG, BID
     Route: 048
  7. TRAZODONE HCL [Concomitant]
     Indication: SLEEP DISORDER
     Dosage: 100 MG, UID/QD
     Route: 048
  8. PROGRAF [Suspect]
     Indication: PANCREAS TRANSPLANT
     Dosage: 3 MG, BID
     Route: 048
     Dates: start: 20020201, end: 20100120
  9. MYCOPHENOLATE MOFETIL [Concomitant]
     Indication: RENAL TRANSPLANT
     Dosage: 500 MG, BID
     Route: 048
  10. OXYCODONE HCL [Concomitant]
     Indication: PRODUCT USED FOR UNKNOWN INDICATION
     Dosage: UNK
     Route: 065
  11. LOTENSIN [Suspect]
     Indication: PRODUCT USED FOR UNKNOWN INDICATION
     Dosage: 40 MG, UNKNOWN/D
     Route: 065
  12. TACROLIMUS [Suspect]
     Indication: PANCREAS TRANSPLANT

REACTIONS (9)
  - HOSPITALISATION [None]
  - PANCREATITIS [None]
  - OFF LABEL USE [None]
  - RIB FRACTURE [None]
  - PLEURAL EFFUSION [None]
  - PANCREATIC CYST [None]
  - HYPOVOLAEMIA [None]
  - BLOOD CREATININE INCREASED [None]
  - FALL [None]
